FAERS Safety Report 7113757-6 (Version None)
Quarter: 2010Q4

REPORT INFORMATION
  Report Type: 
  Country: None (occurrence: None)
  Receive Date: 20101119
  Receipt Date: 20101103
  Transmission Date: 20110411
  Serious: No
  Sender: FDA-Public Use
  Company Number: US-B.I. PHARMACEUTICALS,INC./RIDGEFIELD-2010-BP-02098BP

PATIENT
  Sex: Male

DRUGS (3)
  1. FLOMAX [Suspect]
  2. XYZAL [Suspect]
     Indication: UPPER-AIRWAY COUGH SYNDROME
  3. UROXATRAL [Suspect]
     Indication: POLLAKIURIA
     Dosage: 10 MG
     Route: 048
     Dates: start: 20100801

REACTIONS (11)
  - DIZZINESS [None]
  - DRUG INEFFECTIVE [None]
  - DRY THROAT [None]
  - ERECTILE DYSFUNCTION [None]
  - INHIBITORY DRUG INTERACTION [None]
  - MUSCLE SPASMS [None]
  - MUSCULOSKELETAL DISCOMFORT [None]
  - NAUSEA [None]
  - NOCTURIA [None]
  - RHINORRHOEA [None]
  - UPPER-AIRWAY COUGH SYNDROME [None]
